FAERS Safety Report 5725914-1 (Version None)
Quarter: 2008Q2

REPORT INFORMATION
  Report Type: 
  Country: None (occurrence: None)
  Receive Date: 20080429
  Receipt Date: 20080414
  Transmission Date: 20081010
  Serious: Yes (Death, Life-Threatening, Hospitalization, Other)
  Sender: FDA-Public Use
  Company Number: 47460

PATIENT
  Age: 56 Year
  Sex: Female

DRUGS (1)
  1. COLCHICUM JTL LIQ [Suspect]
     Dosage: 2MGX1X WEEKLY FOR 6 WEEKS

REACTIONS (22)
  - ACUTE RESPIRATORY DISTRESS SYNDROME [None]
  - ANURIA [None]
  - BLOOD SMEAR TEST ABNORMAL [None]
  - BRADYCARDIA [None]
  - CARDIAC ARREST [None]
  - CARDIOTOXICITY [None]
  - CHEST PAIN [None]
  - DIARRHOEA [None]
  - DRUG LEVEL ABOVE THERAPEUTIC [None]
  - ECHOCARDIOGRAM ABNORMAL [None]
  - HAEMODYNAMIC INSTABILITY [None]
  - HEPATIC FUNCTION ABNORMAL [None]
  - HYPOTENSION [None]
  - HYPOXIA [None]
  - LACTIC ACIDOSIS [None]
  - LEUKOPENIA [None]
  - NAUSEA [None]
  - RENAL IMPAIRMENT [None]
  - RHABDOMYOLYSIS [None]
  - THROMBOCYTOPENIA [None]
  - VOMITING [None]
  - WHITE BLOOD CELL COUNT INCREASED [None]
